FAERS Safety Report 9061455 (Version 1)
Quarter: 2013Q1

REPORT INFORMATION
  Report Type: Spontaneous
  Country: US (occurrence: None)
  Receive Date: 20130122
  Receipt Date: 20130122
  Transmission Date: 20140127
  Serious: Yes (Death)
  Sender: FDA-Public Use
  Company Number: 1552761

PATIENT
  Age: 27 Year
  Sex: Male

DRUGS (6)
  1. MORPHINE SULPHATE [Suspect]
  2. HYDROMORPHONE HYDROCHLORIDE [Suspect]
  3. OXAZEPAM [Suspect]
  4. TEMAZEPAM [Suspect]
  5. ALPRAZOLAM [Suspect]
  6. CANNABIS SATIVA SUBSP. INDICA TOP [Suspect]

REACTIONS (3)
  - Respiratory arrest [None]
  - Poisoning [None]
  - Cardiac arrest [None]
